FAERS Safety Report 8165007-X (Version None)
Quarter: 2012Q1

REPORT INFORMATION
  Report Type: 
  Country: None (occurrence: None)
  Receive Date: 20120227
  Receipt Date: 20120213
  Transmission Date: 20120608
  Serious: No
  Sender: FDA-Public Use
  Company Number: US-BIOGENIDEC-2012BI005741

PATIENT

DRUGS (1)
  1. AVONEX [Suspect]
     Indication: MULTIPLE SCLEROSIS
     Route: 030
     Dates: start: 20110305

REACTIONS (8)
  - ARTHRALGIA [None]
  - BLINDNESS [None]
  - HEADACHE [None]
  - HYPOAESTHESIA [None]
  - BURNING SENSATION [None]
  - PAIN IN EXTREMITY [None]
  - SCIATICA [None]
  - VISION BLURRED [None]
